FAERS Safety Report 15278664 (Version 1)
Quarter: 2018Q3

REPORT INFORMATION
  Report Type: Report from Study
  Country: None (occurrence: US)
  Receive Date: 20180815
  Receipt Date: 20180815
  Transmission Date: 20181010
  Serious: Yes (Other)
  Sender: FDA-Public Use
  Company Number: US-ABBVIE-18K-163-2296886-00

PATIENT
  Age: 82 Year
  Sex: Male

DRUGS (1)
  1. HUMIRA [Suspect]
     Active Substance: ADALIMUMAB
     Indication: COLITIS ULCERATIVE
     Route: 058

REACTIONS (8)
  - Coronary artery occlusion [Unknown]
  - Oesophageal obstruction [Unknown]
  - Food intolerance [Unknown]
  - Colitis ulcerative [Unknown]
  - Peripheral swelling [Not Recovered/Not Resolved]
  - Abdominal hernia [Unknown]
  - Abdominal pain [Unknown]
  - Defaecation urgency [Unknown]

NARRATIVE: CASE EVENT DATE: 20180315
